FAERS Safety Report 24214490 (Version 2)
Quarter: 2024Q3

REPORT INFORMATION
  Report Type: Spontaneous
  Country: US (occurrence: US)
  Receive Date: 20240815
  Receipt Date: 20240819
  Transmission Date: 20241016
  Serious: Yes (Disabling, Other)
  Sender: PURDUE
  Company Number: US-PURDUE PHARMA-USA-2024-0311360

PATIENT
  Age: 24 Year

DRUGS (2)
  1. OXYCONTIN [Suspect]
     Active Substance: OXYCODONE HYDROCHLORIDE
     Indication: Pain management
     Dosage: UNKNOWN (180 OXYCOTTON 80S)
     Route: 048
  2. OXYCONTIN [Suspect]
     Active Substance: OXYCODONE HYDROCHLORIDE
     Dosage: UNKNOWN (180 OXSEE 80S A MONTH)
     Route: 048

REACTIONS (3)
  - Drug dependence [Unknown]
  - Impaired quality of life [Unknown]
  - Product prescribing issue [Unknown]
